FAERS Safety Report 8596633-1 (Version None)
Quarter: 2012Q3

REPORT INFORMATION
  Report Type: 
  Country: None (occurrence: None)
  Receive Date: 20120815
  Receipt Date: 20120807
  Transmission Date: 20120928
  Serious: Yes (Other)
  Sender: FDA-Public Use
  Company Number: CHPA2012US017762

PATIENT
  Age: 80 Year
  Sex: Female

DRUGS (4)
  1. GAVISCON                                /GFR/ [Concomitant]
     Dosage: UNK, UNK
  2. MAALOX MS TOTAL STOMACH RELIEF [Suspect]
     Indication: GASTROOESOPHAGEAL REFLUX DISEASE
     Dosage: AS DIRECTED ON LABEL
     Route: 048
  3. ZANTAC [Concomitant]
     Indication: GASTROOESOPHAGEAL REFLUX DISEASE
     Dosage: UNK, UNK
     Dates: start: 20120805, end: 20120806
  4. GAS-X [Concomitant]
     Indication: FLATULENCE
     Dosage: UNK, PRN

REACTIONS (3)
  - DIABETES MELLITUS [None]
  - OFF LABEL USE [None]
  - THERAPEUTIC RESPONSE UNEXPECTED [None]
